FAERS Safety Report 6595683-4 (Version None)
Quarter: 2010Q1

REPORT INFORMATION
  Report Type: 
  Country: None (occurrence: None)
  Receive Date: 20100222
  Receipt Date: 20100222
  Transmission Date: 20100710
  Serious: Yes (Hospitalization)
  Sender: FDA-Public Use
  Company Number: None

PATIENT
  Age: 78 Year
  Sex: Female
  Weight: 104.3273 kg

DRUGS (1)
  1. LISINOPRIL AND HYDROCHLOROTHIAZIDE [Suspect]
     Indication: BLOOD PRESSURE DECREASED
     Dosage: 1 TABLET DAILY
     Dates: start: 20091001, end: 20100108

REACTIONS (5)
  - OEDEMA MOUTH [None]
  - PAIN IN EXTREMITY [None]
  - SPEECH DISORDER [None]
  - SWOLLEN TONGUE [None]
  - VARICOSE VEIN [None]
